FAERS Safety Report 6963939-9 (Version None)
Quarter: 2010Q3

REPORT INFORMATION
  Report Type: 
  Country: None (occurrence: None)
  Receive Date: 20100831
  Receipt Date: 20100816
  Transmission Date: 20110219
  Serious: Yes (Other)
  Sender: FDA-Public Use
  Company Number: 1000015134

PATIENT
  Age: 23 Year
  Sex: Female
  Weight: 90 kg

DRUGS (2)
  1. ESCITALOPRAM OXALATE [Suspect]
     Indication: SCHIZOAFFECTIVE DISORDER
     Dosage: 30 MG (30 MG, 1 IN 1 D), ORAL
     Route: 048
  2. SEROQUEL [Suspect]
     Indication: SCHIZOAFFECTIVE DISORDER
     Dosage: 600 MG (600 MG, 1 IN 1 D), ORAL
     Route: 048

REACTIONS (5)
  - CAESAREAN SECTION [None]
  - DRUG EXPOSURE DURING PREGNANCY [None]
  - OFF LABEL USE [None]
  - OVERDOSE [None]
  - PREGNANCY [None]
